FAERS Safety Report 4781125-8 (Version None)
Quarter: 2005Q3

REPORT INFORMATION
  Report Type: 
  Country: None (occurrence: None)
  Receive Date: 20050928
  Receipt Date: 20050923
  Transmission Date: 20060218
  Serious: Yes (Other)
  Sender: FDA-Public Use
  Company Number: DE-RB-2098-2005

PATIENT
  Age: 46 Year
  Sex: Male
  Weight: 96 kg

DRUGS (3)
  1. BUPRENORPHINE HCL [Suspect]
     Indication: DRUG DEPENDENCE
     Route: 060
  2. ENALAPRIL [Suspect]
     Indication: HYPERTENSION
     Route: 048
  3. INSULIN [Concomitant]
     Indication: DIABETES MELLITUS
     Dosage: UNKNOWN DOSAGE
     Route: 058

REACTIONS (4)
  - AMAUROSIS FUGAX [None]
  - CEREBRAL PERFUSION PRESSURE DECREASED [None]
  - DRUG INTERACTION [None]
  - HYPOTENSION [None]
